FAERS Safety Report 15118839 (Version 1)
Quarter: 2018Q3

REPORT INFORMATION
  Report Type: Spontaneous
  Country: US (occurrence: US)
  Receive Date: 20180709
  Receipt Date: 20180709
  Transmission Date: 20181010
  Serious: No
  Sender: FDA-Public Use
  Company Number: US-GLENMARK PHARMACEUTICALS-2018GMK036034

PATIENT

DRUGS (2)
  1. ALCLOMETASONE DIPROPIONATE. [Suspect]
     Active Substance: ALCLOMETASONE DIPROPIONATE
     Indication: ECZEMA
  2. ALCLOMETASONE DIPROPIONATE. [Suspect]
     Active Substance: ALCLOMETASONE DIPROPIONATE
     Indication: HYPERSENSITIVITY
     Dosage: UNK, SINGLE
     Route: 065

REACTIONS (2)
  - Feeling hot [Recovered/Resolved]
  - Skin burning sensation [Recovered/Resolved]
